FAERS Safety Report 5677010-X (Version None)
Quarter: 2008Q1

REPORT INFORMATION
  Report Type: 
  Country: None (occurrence: None)
  Receive Date: 20080324
  Receipt Date: 20080312
  Transmission Date: 20080703
  Serious: Yes (Death)
  Sender: FDA-Public Use
  Company Number: PHBS2008PK03241

PATIENT
  Age: 16 Year
  Sex: Male

DRUGS (3)
  1. ANTILYMPHOCYTE GLOBULIN [Concomitant]
     Dosage: 10 MG/KG/D
     Route: 042
  2. METHYLPREDNISOLONE [Concomitant]
     Dosage: 2 MG/KG/D
     Route: 042
  3. CYCLOSPORINE [Suspect]
     Indication: APLASTIC ANAEMIA
     Dosage: 5 MG/KG/D
     Route: 048

REACTIONS (18)
  - ALANINE AMINOTRANSFERASE INCREASED [None]
  - ANURIA [None]
  - BLOOD BILIRUBIN INCREASED [None]
  - BLOOD CREATINE PHOSPHOKINASE INCREASED [None]
  - BLOOD CREATININE INCREASED [None]
  - BLOOD UREA INCREASED [None]
  - ENDOTRACHEAL INTUBATION [None]
  - HEART RATE INCREASED [None]
  - HYPOTENSION [None]
  - MUSCLE SWELLING [None]
  - MYALGIA [None]
  - MYOGLOBIN BLOOD INCREASED [None]
  - OXYGEN SATURATION DECREASED [None]
  - PYREXIA [None]
  - RESUSCITATION [None]
  - RHABDOMYOLYSIS [None]
  - TACHYCARDIA [None]
  - TACHYPNOEA [None]
